FAERS Safety Report 11869413 (Version 1)
Quarter: 2015Q4

REPORT INFORMATION
  Report Type: Spontaneous
  Country: US (occurrence: US)
  Receive Date: 20151227
  Receipt Date: 20151227
  Transmission Date: 20160305
  Serious: Yes (Hospitalization)
  Sender: FDA-Public Use
  Company Number: US-AMGEN-USASP2015136975

PATIENT
  Age: 72 Year
  Sex: Male
  Weight: 95.25 kg

DRUGS (18)
  1. OSCAL                              /00514701/ [Concomitant]
     Dosage: 500 MG, UNK
  2. LEVOFLOXACIN. [Concomitant]
     Active Substance: LEVOFLOXACIN
     Dosage: UNK
     Dates: start: 201507, end: 201508
  3. INLYTA [Suspect]
     Active Substance: AXITINIB
     Indication: RENAL CANCER
     Dosage: 5 MG, BID
     Route: 048
     Dates: start: 20150811, end: 20151021
  4. LISINOPRIL. [Concomitant]
     Active Substance: LISINOPRIL
     Indication: SCAR
     Dosage: 20 MG, QD
     Route: 048
     Dates: start: 20150421
  5. MULTI VITAMIN [Concomitant]
     Active Substance: VITAMINS
     Dosage: 9 MG, UNK
     Dates: start: 20150421
  6. ASPIRIN                            /00002701/ [Concomitant]
     Active Substance: ASPIRIN
     Indication: CEREBROVASCULAR ACCIDENT
     Dosage: 325 MG, UNK
     Dates: start: 20150803
  7. SIMVASTATIN. [Concomitant]
     Active Substance: SIMVASTATIN
     Indication: DYSLIPIDAEMIA
     Dosage: 40 MG, UNK
     Route: 048
     Dates: start: 20150421
  8. OMEPRAZOLE. [Concomitant]
     Active Substance: OMEPRAZOLE
     Dosage: 20 MG, QD
     Route: 048
     Dates: start: 20150421
  9. IRON [Concomitant]
     Active Substance: IRON
     Dosage: 15 ML, UNK
     Route: 048
  10. RAPAMUNE [Suspect]
     Active Substance: SIROLIMUS
     Indication: PRODUCT USED FOR UNKNOWN INDICATION
     Dosage: UNK, QD
     Route: 048
     Dates: start: 20150803
  11. NIFEDIPINE. [Concomitant]
     Active Substance: NIFEDIPINE
     Indication: HEART RATE IRREGULAR
     Dosage: 90 MG, UNK
     Route: 048
  12. METAMUCIL PLUS CALCIUM [Concomitant]
     Dosage: UNK
     Route: 048
     Dates: start: 20150421
  13. VITAMIN D3 [Concomitant]
     Active Substance: CHOLECALCIFEROL
     Dosage: 400 UNK, UNK
     Route: 048
     Dates: start: 20150803
  14. XGEVA [Suspect]
     Active Substance: DENOSUMAB
     Indication: PRODUCT USED FOR UNKNOWN INDICATION
     Dosage: 120 MG, Q4WK
     Route: 065
     Dates: start: 20150804
  15. FINASTERIDE. [Concomitant]
     Active Substance: FINASTERIDE
     Indication: PROSTATOMEGALY
     Dosage: 5 MG, UNK
     Dates: start: 20150421
  16. NIACIN. [Concomitant]
     Active Substance: NIACIN
     Indication: DYSLIPIDAEMIA
     Dosage: 250 MG, UNK
     Route: 048
  17. PREDNISONE. [Concomitant]
     Active Substance: PREDNISONE
     Indication: KIDNEY TRANSPLANT REJECTION
     Dosage: 7.5 MG, QD
     Route: 048
     Dates: start: 20150421
  18. PROGRAF [Concomitant]
     Active Substance: TACROLIMUS\TACROLIMUS ANHYDROUS
     Dosage: 1 MG, QID
     Route: 048
     Dates: start: 20150421

REACTIONS (5)
  - Protein total increased [Recovering/Resolving]
  - Bone operation [Unknown]
  - Tendon disorder [Not Recovered/Not Resolved]
  - Inappropriate schedule of drug administration [Unknown]
  - Blood pressure increased [Recovering/Resolving]

NARRATIVE: CASE EVENT DATE: 201510
